FAERS Safety Report 7647826-9 (Version None)
Quarter: 2011Q3

REPORT INFORMATION
  Report Type: 
  Country: None (occurrence: None)
  Receive Date: 20110726
  Receipt Date: 20110711
  Transmission Date: 20111222
  Serious: Yes (Hospitalization, Other)
  Sender: FDA-Public Use
  Company Number: AUR-APL-2011-04264

PATIENT
  Age: 69 Year
  Sex: Female

DRUGS (5)
  1. ENALAPRIL MALEATE [Suspect]
     Indication: ESSENTIAL HYPERTENSION
     Dosage: (20 MG, 1 D), ORAL
     Route: 048
     Dates: end: 20110420
  2. AMOXICILLIN TRIHYDRATE [Suspect]
     Indication: BRONCHITIS
     Dosage: 1500 MG (750 MG, 2 IN 1 D), ORAL
     Route: 048
     Dates: start: 20110418, end: 20110427
  3. CLIMEPIRID ACTAVIS (GLIMEPIRIDE) [Concomitant]
  4. METFORMIN HCL [Suspect]
     Indication: DIABETES MELLITUS
     Dosage: (2 GM, 1D), ORAL
     Route: 048
     Dates: end: 20110420
  5. SALURES (BENDROFLUMETHIAZIDE) [Suspect]
     Indication: ESSENTIAL HYPERTENSION
     Dosage: (2.5 MG, 1 D), ORAL
     Route: 048
     Dates: end: 20110420

REACTIONS (3)
  - PRODUCTIVE COUGH [None]
  - RENAL FAILURE ACUTE [None]
  - OROPHARYNGEAL PAIN [None]
